FAERS Safety Report 10969001 (Version 1)
Quarter: 2015Q1

REPORT INFORMATION
  Report Type: Spontaneous
  Country: CA (occurrence: CA)
  Receive Date: 20150331
  Receipt Date: 20150331
  Transmission Date: 20150721
  Serious: Yes (Hospitalization)
  Sender: FDA-Public Use
  Company Number: CA-ROCHE-1554284

PATIENT
  Age: 57 Year
  Sex: Male

DRUGS (5)
  1. SPIRIVA [Concomitant]
     Active Substance: TIOTROPIUM BROMIDE MONOHYDRATE
  2. XOLAIR [Suspect]
     Active Substance: OMALIZUMAB
     Indication: ASTHMA
     Route: 058
     Dates: start: 20140526
  3. XOLAIR [Suspect]
     Active Substance: OMALIZUMAB
     Route: 058
     Dates: start: 201405
  4. ADVAIR HFA [Concomitant]
     Active Substance: FLUTICASONE PROPIONATE\SALMETEROL XINAFOATE
  5. OMNARIS [Concomitant]
     Active Substance: CICLESONIDE

REACTIONS (9)
  - Asthenia [Unknown]
  - Asthma [Unknown]
  - Diarrhoea [Unknown]
  - Fatigue [Unknown]
  - Sinus disorder [Unknown]
  - Dysphonia [Unknown]
  - Oropharyngeal pain [Unknown]
  - Libido decreased [Unknown]
  - Infection [Unknown]

NARRATIVE: CASE EVENT DATE: 20140527
